FAERS Safety Report 15486765 (Version 1)
Quarter: 2018Q4

REPORT INFORMATION
  Report Type: Spontaneous
  Country: US (occurrence: US)
  Receive Date: 20181003
  Receipt Date: 20181003
  Transmission Date: 20190205
  Serious: No
  Sender: FDA-Public Use
  Company Number: None

PATIENT
  Age: 91 Year
  Sex: Male
  Weight: 88.45 kg

DRUGS (15)
  1. CAL MAG PLUS [Concomitant]
  2. VITAMIN D3 [Concomitant]
     Active Substance: CHOLECALCIFEROL
  3. ATORVASTATIN CALCIUM. [Concomitant]
     Active Substance: ATORVASTATIN CALCIUM
  4. FLUTICASONE PROPIONATE. [Concomitant]
     Active Substance: FLUTICASONE PROPIONATE
  5. FISH OIL [Concomitant]
     Active Substance: FISH OIL
  6. SYMBICORT AER [Concomitant]
  7. AMLODIPINE BESYLATE. [Concomitant]
     Active Substance: AMLODIPINE BESYLATE
  8. ROPINEROLE HCL [Concomitant]
  9. PRESERVISION VISIONSION AREDS 2 [Concomitant]
  10. POTASSIUM CL ER [Concomitant]
     Active Substance: POTASSIUM CHLORIDE
  11. WARFARIN [Concomitant]
     Active Substance: WARFARIN
  12. VITALEA MULTIVITAMIN [Concomitant]
  13. VALSARTAN 160MG [Suspect]
     Active Substance: VALSARTAN
     Indication: HYPERTENSION
     Dosage: ?          QUANTITY:1 DF DOSAGE FORM;?
     Route: 048
     Dates: start: 20180801, end: 20180828
  14. BYSTOLIC [Concomitant]
     Active Substance: NEBIVOLOL HYDROCHLORIDE
  15. TRAZODONE HYDROCHLORIDE. [Concomitant]
     Active Substance: TRAZODONE HYDROCHLORIDE

REACTIONS (5)
  - Feeling abnormal [None]
  - International normalised ratio increased [None]
  - Food allergy [None]
  - Recalled product [None]
  - Rash pruritic [None]

NARRATIVE: CASE EVENT DATE: 20180816
